FAERS Safety Report 9380790 (Version 2)
Quarter: 2013Q3

REPORT INFORMATION
  Report Type: Report from Study
  Country: US (occurrence: US)
  Receive Date: 20130702
  Receipt Date: 20130719
  Transmission Date: 20140515
  Serious: Yes (Hospitalization)
  Sender: FDA-Public Use
  Company Number: US-US-EMD SERONO, INC.-7221278

PATIENT
  Age: 54 Year
  Sex: Male
  Weight: 91 kg

DRUGS (21)
  1. REBIF [Suspect]
     Indication: PRODUCT USED FOR UNKNOWN INDICATION
     Route: 058
     Dates: start: 20130523, end: 20130618
  2. REBIF [Suspect]
  3. IBUPROFEN [Suspect]
     Indication: BACK PAIN
     Dosage: EVERY 6- 8 HOURS
     Route: 048
  4. SEROQUEL                           /01270901/ [Concomitant]
     Indication: SCHIZOAFFECTIVE DISORDER
     Route: 048
  5. VITAMIN D                          /00107901/ [Concomitant]
     Indication: PRODUCT USED FOR UNKNOWN INDICATION
     Route: 048
  6. ACETAMINOPHEN [Concomitant]
     Indication: BACK PAIN
     Route: 048
  7. HYDROCODONE W/ACETAMINOPHEN [Concomitant]
     Indication: BACK PAIN
     Route: 048
  8. CLONAZEPAM [Concomitant]
     Indication: SCHIZOAFFECTIVE DISORDER
     Route: 048
  9. DULCOLAX                           /00061602/ [Concomitant]
     Indication: PRODUCT USED FOR UNKNOWN INDICATION
     Route: 048
  10. EPIPEN                             /00003901/ [Concomitant]
     Indication: FOOD ALLERGY
     Route: 030
  11. LORATADINE [Concomitant]
     Indication: FOOD ALLERGY
     Route: 048
  12. LOVASTATIN [Concomitant]
     Indication: HYPERLIPIDAEMIA
     Dosage: AT NIGHTLY
     Route: 048
  13. SENNA                              /00142201/ [Concomitant]
     Indication: PRODUCT USED FOR UNKNOWN INDICATION
     Route: 048
  14. DOCUSATE SODIUM [Concomitant]
     Indication: PRODUCT USED FOR UNKNOWN INDICATION
     Route: 048
  15. TEMAZEPAM [Concomitant]
     Indication: ANXIETY DISORDER
     Route: 048
  16. ATIVAN [Concomitant]
     Indication: ANXIETY DISORDER
     Route: 041
  17. GEODON                             /01487002/ [Concomitant]
     Indication: ANXIETY DISORDER
  18. DEPAKOTE [Concomitant]
     Indication: SCHIZOAFFECTIVE DISORDER
  19. DEPAKOTE [Concomitant]
     Dosage: NIGHTLY
  20. VITAMIN D3 [Concomitant]
     Indication: PRODUCT USED FOR UNKNOWN INDICATION
     Dosage: DAILY
  21. VICODIN [Concomitant]
     Indication: BACK PAIN
     Dosage: 5/325 PRN

REACTIONS (3)
  - Gastric ulcer perforation [Recovering/Resolving]
  - Multiple sclerosis relapse [Not Recovered/Not Resolved]
  - Urinary tract infection [Unknown]
